FAERS Safety Report 8796099 (Version 1)
Quarter: 2012Q4

REPORT INFORMATION
  Report Type: 
  Country: US (occurrence: US)
  Receive Date: 20120919
  Receipt Date: 20120919
  Transmission Date: 20130627
  Serious: No
  Sender: FDA-Public Use
  Company Number: US-ASTRAZENECA-2012SE70303

PATIENT
  Age: 18 Year
  Sex: Female

DRUGS (2)
  1. CAPRELSA [Suspect]
     Route: 048
     Dates: start: 20120830
  2. SYNTROID [Concomitant]

REACTIONS (4)
  - Myalgia [Unknown]
  - Arthralgia [Unknown]
  - Cough [Unknown]
  - Headache [Unknown]
